FAERS Safety Report 18490315 (Version 2)
Quarter: 2020Q4

REPORT INFORMATION
  Report Type: Spontaneous
  Country: US (occurrence: US)
  Receive Date: 20201111
  Receipt Date: 20201119
  Transmission Date: 20210114
  Serious: No
  Sender: FDA-Public Use
  Company Number: US-ASTRAZENECA-2020SF34729

PATIENT
  Sex: Male
  Weight: 115.7 kg

DRUGS (2)
  1. METFORMIN [Concomitant]
     Active Substance: METFORMIN HYDROCHLORIDE
  2. BYDUREON BCISE [Suspect]
     Active Substance: EXENATIDE
     Indication: TYPE 2 DIABETES MELLITUS
     Route: 058

REACTIONS (6)
  - Wrong technique in device usage process [Unknown]
  - Device leakage [Unknown]
  - Device delivery system issue [Unknown]
  - Device malfunction [Unknown]
  - Device issue [Unknown]
  - Blood glucose increased [Recovering/Resolving]
